FAERS Safety Report 25347587 (Version 1)
Quarter: 2025Q2

REPORT INFORMATION
  Report Type: Spontaneous
  Country: US (occurrence: None)
  Receive Date: 20250522
  Receipt Date: 20250522
  Transmission Date: 20250717
  Serious: Yes (Death)
  Sender: FDA-CTU
  Company Number: None

PATIENT
  Age: 59 Year
  Sex: Male
  Weight: 76.05 kg

DRUGS (1)
  1. LENALIDOMIDE [Suspect]
     Active Substance: LENALIDOMIDE
     Indication: Plasma cell leukaemia
     Dosage: FREQUENCY : DAILY;?
     Route: 048
     Dates: start: 20241008, end: 20250407

REACTIONS (5)
  - Mental disorder [None]
  - Hypertension [None]
  - Lactic acidosis [None]
  - Septic shock [None]
  - Renal impairment [None]

NARRATIVE: CASE EVENT DATE: 20250407
